FAERS Safety Report 16373937 (Version 1)
Quarter: 2019Q2

REPORT INFORMATION
  Report Type: Spontaneous
  Country: US (occurrence: US)
  Receive Date: 20190530
  Receipt Date: 20190530
  Transmission Date: 20190711
  Serious: No
  Sender: FDA-Public Use
  Company Number: US-BRAINTREE LABORATORIES-180536

PATIENT
  Age: 29 Year
  Sex: Female
  Weight: 63.5 kg

DRUGS (1)
  1. NULYTELY [Suspect]
     Active Substance: POLYETHYLENE GLYCOL 3350\POTASSIUM CHLORIDE\SODIUM BICARBONATE\SODIUM CHLORIDE
     Indication: COLONOSCOPY
     Dosage: 2L
     Route: 048
     Dates: start: 20181018, end: 20181018

REACTIONS (4)
  - Rhinorrhoea [None]
  - Eye pruritus [None]
  - Erythema [None]
  - Vomiting [None]

NARRATIVE: CASE EVENT DATE: 20181018
